FAERS Safety Report 8736370 (Version 2)
Quarter: 2012Q4

REPORT INFORMATION
  Report Type: 
  Country: BR (occurrence: BR)
  Receive Date: 20120828
  Receipt Date: 20120904
  Transmission Date: 20130627
  Serious: No
  Sender: FDA-Public Use
  Company Number: BR-JNJFOC-20120809654

PATIENT
  Age: 52 None
  Sex: Female
  Weight: 86 kg

DRUGS (2)
  1. TYLEX [Suspect]
     Indication: PAIN IN EXTREMITY
     Route: 048
     Dates: start: 20120802, end: 20120814
  2. LISADOR [Concomitant]
     Indication: PAIN IN EXTREMITY
     Route: 065
     Dates: start: 20120802

REACTIONS (2)
  - Drug ineffective [Not Recovered/Not Resolved]
  - Gastrointestinal disorder [Unknown]
